FAERS Safety Report 5956462-1 (Version None)
Quarter: 2008Q4

REPORT INFORMATION
  Report Type: 
  Country: None (occurrence: None)
  Receive Date: 20081118
  Receipt Date: 20081106
  Transmission Date: 20090506
  Serious: No
  Sender: FDA-Public Use
  Company Number: JP-BRISTOL-MYERS SQUIBB COMPANY-14360226

PATIENT

DRUGS (1)
  1. ABILIFY [Suspect]
     Route: 048

REACTIONS (1)
  - NO ADVERSE EVENT [None]
